FAERS Safety Report 9549686 (Version 1)
Quarter: 2013Q3

REPORT INFORMATION
  Report Type: Spontaneous
  Country: NO (occurrence: NO)
  Receive Date: 20130924
  Receipt Date: 20130924
  Transmission Date: 20140515
  Serious: Yes (Hospitalization)
  Sender: FDA-Public Use
  Company Number: NO-B.I. PHARMACEUTICALS,INC./RIDGEFIELD-2013-SW-00453NO

PATIENT
  Age: 61 Year
  Sex: Female

DRUGS (10)
  1. PRADAXA [Suspect]
     Route: 048
  2. NO BI DRUG [Suspect]
     Route: 048
     Dates: end: 201304
  3. ENALAPRIL [Concomitant]
     Route: 048
  4. SOFRADEX [Concomitant]
     Dosage: ROUTE: OPHTALMIC, DAILY DOSE: AS NEEDED
  5. LIPITOR [Concomitant]
     Route: 048
  6. VAGIFEM [Concomitant]
     Dosage: 2.8571 MCG
     Route: 067
  7. SELO-ZOC [Concomitant]
     Dosage: 100 MG
     Route: 048
  8. CETIRIZINE [Concomitant]
     Route: 048
  9. PARACET [Concomitant]
     Dosage: DOSAGE TEXT: 2 TABLETS VESP.
     Route: 048
  10. IMOVANE [Concomitant]
     Dosage: 3.75 MG
     Route: 048

REACTIONS (1)
  - Interstitial lung disease [Not Recovered/Not Resolved]
